FAERS Safety Report 21269758 (Version 2)
Quarter: 2022Q3

REPORT INFORMATION
  Report Type: Report from Study
  Country: AT (occurrence: None)
  Receive Date: 20220830
  Receipt Date: 20220902
  Transmission Date: 20221027
  Serious: Yes (Death, Hospitalization)
  Sender: FDA-Public Use
  Company Number: AT-Eisai Medical Research-EC-2022-122077

PATIENT
  Age: 64 Year
  Sex: Female
  Weight: 112.8 kg

DRUGS (16)
  1. LENVATINIB [Suspect]
     Active Substance: LENVATINIB
     Indication: Small cell lung cancer extensive stage
     Dosage: STARTING DOSE AT 8 MG (INDUCTION) AND 20 MG (MAINTENANCE), (FLUCTUATED DOSAGE)
     Route: 048
     Dates: start: 20220301, end: 20220731
  2. LENVATINIB [Suspect]
     Active Substance: LENVATINIB
     Route: 048
     Dates: start: 20220801, end: 202208
  3. PEMBROLIZUMAB [Suspect]
     Active Substance: PEMBROLIZUMAB
     Indication: Small cell lung cancer extensive stage
     Route: 042
     Dates: start: 20220301, end: 20220621
  4. PEMBROLIZUMAB [Suspect]
     Active Substance: PEMBROLIZUMAB
     Route: 042
     Dates: start: 20220712, end: 20220712
  5. ETOPOSIDE [Suspect]
     Active Substance: ETOPOSIDE
     Indication: Small cell lung cancer extensive stage
     Dosage: ON DAY 1,2 AND 3
     Route: 042
     Dates: start: 20220301, end: 20220505
  6. ETOPOSIDE [Suspect]
     Active Substance: ETOPOSIDE
     Dosage: ON DAY 1,2 AND 3
     Route: 042
     Dates: start: 20220506, end: 20220506
  7. CARBOPLATIN [Suspect]
     Active Substance: CARBOPLATIN
     Indication: Small cell lung cancer extensive stage
     Dosage: AREA UNDER CURVE: 5 MG/ML/MIN
     Route: 042
     Dates: start: 20220301, end: 20220412
  8. CARBOPLATIN [Suspect]
     Active Substance: CARBOPLATIN
     Dosage: AREA UNDER CURVE: 5 MG/ML/MIN
     Route: 042
     Dates: start: 20220504, end: 20220504
  9. BISOPROLOL FUMARATE [Concomitant]
     Active Substance: BISOPROLOL FUMARATE
     Dates: start: 200201
  10. ASPIRIN [Concomitant]
     Active Substance: ASPIRIN
     Dates: start: 201401
  11. HYDROCHLOROTHIAZIDE\VALSARTAN [Concomitant]
     Active Substance: HYDROCHLOROTHIAZIDE\VALSARTAN
     Dates: start: 201702
  12. ZIEXTENZO [Concomitant]
     Active Substance: PEGFILGRASTIM-BMEZ
     Dates: start: 20220301
  13. METOCLOPRAMIDE HYDROCHLORIDE [Concomitant]
     Active Substance: METOCLOPRAMIDE HYDROCHLORIDE
     Dates: start: 20220301
  14. METAMIZOLE [Concomitant]
     Active Substance: METAMIZOLE
     Dates: start: 20220606
  15. PANTOPRAZOLE SODIUM [Concomitant]
     Active Substance: PANTOPRAZOLE SODIUM
     Dates: start: 20220606
  16. LEVOTHYROXINE SODIUM [Concomitant]
     Active Substance: LEVOTHYROXINE SODIUM
     Dates: start: 20220712

REACTIONS (1)
  - Sepsis [Fatal]

NARRATIVE: CASE EVENT DATE: 20220822
